FAERS Safety Report 5495968-9 (Version None)
Quarter: 2007Q4

REPORT INFORMATION
  Report Type: 
  Country: None (occurrence: None)
  Receive Date: 20071025
  Receipt Date: 20070104
  Transmission Date: 20080405
  Serious: No
  Sender: FDA-Public Use
  Company Number: A0634115A

PATIENT
  Age: 81 Year
  Sex: Female

DRUGS (9)
  1. ADVAIR DISKUS 100/50 [Suspect]
     Indication: CHRONIC OBSTRUCTIVE PULMONARY DISEASE
     Dosage: 1PUFF TWICE PER DAY
     Route: 055
     Dates: start: 20020101
  2. THEOPHYLLINE [Concomitant]
  3. ALBUTEROL [Concomitant]
  4. FLONASE [Concomitant]
  5. METHYLDOPA [Concomitant]
  6. ECOTRIN [Concomitant]
  7. ZETIA [Concomitant]
  8. HYDROCHLOROTHIAZIDE [Concomitant]
  9. FOSAMAX [Concomitant]

REACTIONS (1)
  - OSTEOPOROSIS [None]
